FAERS Safety Report 19063351 (Version 1)
Quarter: 2021Q1

REPORT INFORMATION
  Report Type: Spontaneous
  Country: PH (occurrence: PH)
  Receive Date: 20210326
  Receipt Date: 20210326
  Transmission Date: 20210420
  Serious: Yes (Other)
  Sender: FDA-Public Use
  Company Number: PH-BEH-2021129765

PATIENT

DRUGS (1)
  1. ALBUMINAR?25 [Suspect]
     Active Substance: ALBUMIN HUMAN
     Route: 065

REACTIONS (1)
  - Suspected counterfeit product [Unknown]
